FAERS Safety Report 9919783 (Version 1)
Quarter: 2014Q1

REPORT INFORMATION
  Report Type: Spontaneous
  Country: FR (occurrence: FR)
  Receive Date: 20140224
  Receipt Date: 20140224
  Transmission Date: 20141002
  Serious: Yes (Hospitalization)
  Sender: FDA-Public Use
  Company Number: FR-GLAXOSMITHKLINE-B0969211A

PATIENT
  Age: 36 Year
  Sex: Male

DRUGS (6)
  1. LAMICTAL [Suspect]
     Indication: PRODUCT USED FOR UNKNOWN INDICATION
     Route: 048
     Dates: end: 20140118
  2. AMOXICILLIN [Suspect]
     Indication: PRODUCT USED FOR UNKNOWN INDICATION
     Route: 048
     Dates: start: 20131210
  3. ATARAX [Concomitant]
     Dosage: 25MG THREE TIMES PER DAY
     Route: 048
  4. IMOVANE [Concomitant]
     Dosage: 7.5MG PER DAY
     Route: 048
  5. NOCTAMIDE [Concomitant]
     Dosage: 1.5TABS PER DAY
     Route: 048
     Dates: end: 201312
  6. SERESTA [Concomitant]
     Dosage: 5MG TWICE PER DAY
     Route: 048
     Dates: end: 201312

REACTIONS (9)
  - Drug reaction with eosinophilia and systemic symptoms [Recovering/Resolving]
  - Rash pruritic [Recovered/Resolved]
  - Pyrexia [Recovered/Resolved]
  - Lymphadenopathy [Recovered/Resolved]
  - Odynophagia [Unknown]
  - Face oedema [Recovered/Resolved]
  - Hepatic pain [Unknown]
  - Chills [Unknown]
  - Eosinophilia [Recovering/Resolving]
